FAERS Safety Report 7215102-4 (Version None)
Quarter: 2011Q1

REPORT INFORMATION
  Report Type: 
  Country: None (occurrence: None)
  Receive Date: 20110107
  Receipt Date: 20100825
  Transmission Date: 20110831
  Serious: No
  Sender: FDA-Public Use
  Company Number: A0877675A

PATIENT
  Age: 54 Year
  Sex: Male

DRUGS (5)
  1. PLAVIX [Concomitant]
  2. COREG [Concomitant]
  3. CRESTOR [Concomitant]
  4. LOVAZA [Suspect]
     Dosage: 1CAP AT NIGHT
     Route: 048
     Dates: start: 20100501
  5. ASPIRIN [Concomitant]

REACTIONS (4)
  - OEDEMA PERIPHERAL [None]
  - FLUID RETENTION [None]
  - INCREASED APPETITE [None]
  - WEIGHT INCREASED [None]
